FAERS Safety Report 6137216-2 (Version None)
Quarter: 2009Q1

REPORT INFORMATION
  Report Type: 
  Country: None (occurrence: None)
  Receive Date: 20090330
  Receipt Date: 20090319
  Transmission Date: 20090719
  Serious: Yes (Hospitalization, Other)
  Sender: FDA-Public Use
  Company Number: PHHY2009JP10478

PATIENT
  Sex: Male
  Weight: 69 kg

DRUGS (6)
  1. DIOVAN [Suspect]
     Indication: HYPERTENSION
     Dosage: 40 MG DAILY
     Route: 048
     Dates: start: 20080401, end: 20080523
  2. DIOVAN [Suspect]
     Dosage: 80 MG DAILY
     Route: 048
     Dates: start: 20080524, end: 20080528
  3. GASPORT [Concomitant]
     Dosage: 20 MG, UNK
     Route: 048
     Dates: start: 20071228
  4. GASMOTIN [Concomitant]
     Dosage: 15 MG, UNK
     Route: 048
     Dates: start: 20071228
  5. STOMILASE [Concomitant]
     Dosage: 3 DF, UNK
     Route: 048
     Dates: start: 20080215
  6. MENIACE [Concomitant]
     Dosage: 18 MG, UNK
     Route: 048
     Dates: start: 20080425

REACTIONS (6)
  - ABDOMINAL PAIN [None]
  - C-REACTIVE PROTEIN INCREASED [None]
  - GASTRITIS [None]
  - HEPATITIS VIRAL [None]
  - LIVER DISORDER [None]
  - LYMPHOCYTE MORPHOLOGY ABNORMAL [None]
